FAERS Safety Report 8619200-X (Version None)
Quarter: 2012Q3

REPORT INFORMATION
  Report Type: 
  Country: None (occurrence: None)
  Receive Date: 20120810
  Receipt Date: 20120726
  Transmission Date: 20120928
  Serious: Yes (Other)
  Sender: FDA-Public Use
  Company Number: 2012PV000051

PATIENT
  Age: 21 Year
  Sex: Female

DRUGS (2)
  1. METHOTREXATE [Suspect]
     Indication: MULTIPLE MYELOMA
  2. DEPOCYT [Suspect]
     Indication: MULTIPLE MYELOMA
     Dosage: INTH
     Route: 037

REACTIONS (4)
  - HEMIPARESIS [None]
  - LEUKOENCEPHALOPATHY [None]
  - APHASIA [None]
  - CEREBROVASCULAR ACCIDENT [None]
